FAERS Safety Report 7166158-9 (Version None)
Quarter: 2010Q4

REPORT INFORMATION
  Report Type: 
  Country: None (occurrence: None)
  Receive Date: 20101216
  Receipt Date: 20101207
  Transmission Date: 20110411
  Serious: Yes (Other)
  Sender: FDA-Public Use
  Company Number: GB-PAR PHARMACEUTICAL, INC-2010SCPR002334

PATIENT
  Age: 27 Year
  Sex: Female

DRUGS (1)
  1. PROPRANOLOL HCL [Suspect]
     Indication: PRODUCT USED FOR UNKNOWN INDICATION
     Dosage: 7 G, UNKNOWN
     Route: 048

REACTIONS (5)
  - BRADYCARDIA [None]
  - CARDIAC ARREST [None]
  - GRAND MAL CONVULSION [None]
  - HYPOTENSION [None]
  - OVERDOSE [None]
